FAERS Safety Report 19399285 (Version 2)
Quarter: 2021Q3

REPORT INFORMATION
  Report Type: Spontaneous
  Country: JP (occurrence: JP)
  Receive Date: 20210610
  Receipt Date: 20210910
  Transmission Date: 20211014
  Serious: Yes (Other)
  Sender: FDA-Public Use
  Company Number: JP-BRISTOL-MYERS SQUIBB COMPANY-BMS-2021-054819

PATIENT
  Age: 81 Year
  Sex: Female

DRUGS (3)
  1. ORENCIA [Suspect]
     Active Substance: ABATACEPT
     Indication: RHEUMATOID ARTHRITIS
     Dosage: UNK
     Route: 065
  2. STEROIDS [Concomitant]
     Active Substance: UNSPECIFIED INGREDIENT
     Indication: PRODUCT USED FOR UNKNOWN INDICATION
     Dosage: UNK
     Route: 065
  3. PREDONINE [PREDNISOLONE ACETATE] [Concomitant]
     Active Substance: PREDNISOLONE ACETATE
     Indication: RHEUMATOID ARTHRITIS
     Dosage: 3 MILLIGRAM, DAY
     Route: 065

REACTIONS (2)
  - Pleural effusion [Recovering/Resolving]
  - Metastases to pleura [Unknown]
